FAERS Safety Report 6656359-8 (Version None)
Quarter: 2010Q1

REPORT INFORMATION
  Report Type: 
  Country: None (occurrence: None)
  Receive Date: 20100329
  Receipt Date: 20100318
  Transmission Date: 20100710
  Serious: Yes (Death, Hospitalization)
  Sender: FDA-Public Use
  Company Number: JP-JNJFOC-20100202342

PATIENT
  Sex: Female
  Weight: 72 kg

DRUGS (5)
  1. REMICADE [Suspect]
     Indication: RHEUMATOID ARTHRITIS
     Dosage: 10 INFUSIONS ON UNSPECIFIED DATES
     Route: 042
  2. REMICADE [Suspect]
     Dosage: 12TH INFUSION
     Route: 042
  3. REMICADE [Suspect]
     Route: 042
  4. RHEUMATREX [Suspect]
     Indication: RHEUMATOID ARTHRITIS
     Route: 048
  5. OMEPRAL [Concomitant]
     Route: 042

REACTIONS (13)
  - BACTERIAL TEST POSITIVE [None]
  - BRONCHIOLITIS [None]
  - COLITIS ISCHAEMIC [None]
  - CYTOMEGALOVIRUS INFECTION [None]
  - GASTRITIS [None]
  - GASTROINTESTINAL EROSION [None]
  - PEPTIC ULCER [None]
  - PERITONITIS [None]
  - PLEURAL EFFUSION [None]
  - PNEUMONIA [None]
  - PNEUMONIA CHLAMYDIAL [None]
  - SEPSIS [None]
  - TUBERCULOSIS [None]
